FAERS Safety Report 24616428 (Version 2)
Quarter: 2024Q4

REPORT INFORMATION
  Report Type: Report from Study
  Country: US (occurrence: US)
  Receive Date: 20241114
  Receipt Date: 20241202
  Transmission Date: 20250115
  Serious: Yes (Hospitalization, Other)
  Sender: ABBVIE
  Company Number: US-ABBVIE-6000366

PATIENT
  Age: 70 Year
  Sex: Male
  Weight: 72.57 kg

DRUGS (1)
  1. SKYRIZI [Suspect]
     Active Substance: RISANKIZUMAB-RZAA
     Indication: Crohn^s disease
     Route: 058
     Dates: start: 20230417

REACTIONS (4)
  - Cerebrovascular accident [Recovered/Resolved]
  - Dysgraphia [Recovering/Resolving]
  - Movement disorder [Recovering/Resolving]
  - Walking aid user [Unknown]

NARRATIVE: CASE EVENT DATE: 20230901
